FAERS Safety Report 7204301-3 (Version None)
Quarter: 2010Q4

REPORT INFORMATION
  Report Type: 
  Country: None (occurrence: None)
  Receive Date: 20101230
  Receipt Date: 20101228
  Transmission Date: 20110411
  Serious: Yes (Hospitalization)
  Sender: FDA-Public Use
  Company Number: FR-ROCHE-750694

PATIENT
  Sex: Female

DRUGS (4)
  1. KYTRIL [Suspect]
     Indication: PREMEDICATION
     Dosage: STRENGTH:3MG/3ML, FORM:INJECTABLE SOLUTION
     Route: 042
     Dates: start: 20101027, end: 20101027
  2. ELOXATIN [Suspect]
     Dosage: FORM:INFUSION
     Route: 042
     Dates: end: 20101027
  3. METHYLPREDNISOLONE [Suspect]
     Indication: PREMEDICATION
     Route: 042
     Dates: start: 20101027, end: 20101027
  4. EMEND [Suspect]
     Indication: PREMEDICATION
     Route: 048
     Dates: start: 20101027, end: 20101027

REACTIONS (4)
  - DIARRHOEA [None]
  - MALAISE [None]
  - NAUSEA [None]
  - VOMITING [None]
